FAERS Safety Report 16653746 (Version 1)
Quarter: 2019Q3

REPORT INFORMATION
  Report Type: Spontaneous
  Country: CA (occurrence: CA)
  Receive Date: 20190731
  Receipt Date: 20190731
  Transmission Date: 20191004
  Serious: Yes (Death)
  Sender: FDA-Public Use
  Company Number: CA-PFIZER INC-2018032326

PATIENT
  Age: 47 Year
  Sex: Female

DRUGS (2)
  1. IBRANCE [Suspect]
     Active Substance: PALBOCICLIB
     Indication: BREAST CANCER METASTATIC
     Dosage: 125 MG, CYCLIC (DAILY, FOR 21 DAYS FOLLOWED BY 7 DAYS OFF)
     Route: 048
     Dates: start: 20180203
  2. LETROZOLE. [Concomitant]
     Active Substance: LETROZOLE
     Dosage: 2.5 MG, DAILY
     Route: 048

REACTIONS (1)
  - Death [Fatal]
